FAERS Safety Report 14820573 (Version 2)
Quarter: 2018Q2

REPORT INFORMATION
  Report Type: Spontaneous
  Country: DE (occurrence: DE)
  Receive Date: 20180427
  Receipt Date: 20180510
  Transmission Date: 20180711
  Serious: Yes (Hospitalization, Other)
  Sender: FDA-Public Use
  Company Number: DE-WEST-WARD PHARMACEUTICALS CORP.-DE-H14001-18-03379

PATIENT
  Age: 58 Year
  Sex: Female
  Weight: 37 kg

DRUGS (6)
  1. CARBOPLATIN. [Suspect]
     Active Substance: CARBOPLATIN
     Indication: HEAD AND NECK CANCER
     Dosage: 5 AUC (1)
     Dates: start: 20170621, end: 20170918
  2. FLUOROURACIL. [Suspect]
     Active Substance: FLUOROURACIL
     Dosage: DAILY DOSE: 200 MG/M2 MILLIGRAM(S)/SQ. METER EVERY 3 WEEKS
     Route: 065
     Dates: start: 20170720
  3. ERBITUX [Suspect]
     Active Substance: CETUXIMAB
     Indication: HEAD AND NECK CANCER
     Dosage: DAILY DOSE: 250 MG/M2 MILLIGRAM(S)/SQ. METER EVERY WEEKS
     Route: 042
     Dates: start: 20170705
  4. ERBITUX [Suspect]
     Active Substance: CETUXIMAB
     Route: 042
     Dates: start: 20170621
  5. PARACETAMOL [Concomitant]
     Active Substance: ACETAMINOPHEN
     Indication: PREMEDICATION
     Dosage: ()
  6. FLUOROURACIL. [Suspect]
     Active Substance: FLUOROURACIL
     Indication: HEAD AND NECK CANCER
     Dosage: DAILY DOSE: 3000 MG/M2 MILLIGRAM(S)/SQ. METER EVERY 3 WEEKS
     Route: 065
     Dates: start: 20170621, end: 20170918

REACTIONS (1)
  - Weight decreased [Not Recovered/Not Resolved]

NARRATIVE: CASE EVENT DATE: 20170821
